FAERS Safety Report 15335189 (Version 2)
Quarter: 2018Q4

REPORT INFORMATION
  Report Type: Report from Study
  Country: IE (occurrence: IE)
  Receive Date: 20180830
  Receipt Date: 20181101
  Transmission Date: 20190204
  Serious: Yes (Other)
  Sender: FDA-Public Use
  Company Number: IE-ASTRAZENECA-2018SE94170

PATIENT
  Age: 69 Year
  Sex: Female

DRUGS (4)
  1. KISQALI [Suspect]
     Active Substance: RIBOCICLIB
     Indication: BREAST CANCER METASTATIC
     Dosage: 400 MG, 21 DAY SUPPLY UNKNOWN
     Route: 065
     Dates: start: 20180814
  2. FULVESTRANT. [Suspect]
     Active Substance: FULVESTRANT
     Indication: PRODUCT USED FOR UNKNOWN INDICATION
     Route: 030
  3. KISQALI [Suspect]
     Active Substance: RIBOCICLIB
     Indication: BREAST CANCER METASTATIC
     Dosage: 600.0MG UNKNOWN
     Route: 065
     Dates: start: 20180606
  4. KISQALI [Suspect]
     Active Substance: RIBOCICLIB
     Indication: BREAST CANCER METASTATIC
     Dosage: UNKNOWN UNKNOWN
     Route: 065
     Dates: start: 20180710

REACTIONS (19)
  - Asthenia [Recovering/Resolving]
  - Malignant neoplasm progression [Unknown]
  - Haematocrit decreased [Unknown]
  - Decreased appetite [Recovering/Resolving]
  - Monocyte count decreased [Unknown]
  - Nausea [Recovered/Resolved]
  - Neutropenia [Recovering/Resolving]
  - Red blood cell count decreased [Unknown]
  - Epistaxis [Recovered/Resolved]
  - Oral pain [Recovering/Resolving]
  - Haemoglobin decreased [Unknown]
  - Feeling of body temperature change [Recovering/Resolving]
  - Gingival pain [Unknown]
  - Fatigue [Recovered/Resolved]
  - Blood count abnormal [Recovered/Resolved]
  - Malaise [Recovered/Resolved]
  - Cold sweat [Recovering/Resolving]
  - White blood cell count decreased [Unknown]
  - Breast cancer metastatic [Unknown]

NARRATIVE: CASE EVENT DATE: 20180619
